FAERS Safety Report 11012435 (Version 1)
Quarter: 2015Q2

REPORT INFORMATION
  Report Type: Spontaneous
  Country: US (occurrence: None)
  Receive Date: 20150410
  Receipt Date: 20150410
  Transmission Date: 20150821
  Serious: Yes (Life-Threatening)
  Sender: FDA-Public Use
  Company Number: None

PATIENT
  Age: 44 Year
  Sex: Female

DRUGS (2)
  1. RIBAVIRIN. [Concomitant]
     Active Substance: RIBAVIRIN
  2. SOVALDI [Suspect]
     Active Substance: SOFOSBUVIR
     Indication: HEPATITIS C
     Dosage: 03/31/2015 -- 04/08/2015 2-3 DAYS?1 PILL, QD, ORAL
     Route: 048
     Dates: start: 20150331, end: 20150408

REACTIONS (2)
  - Oral discomfort [None]
  - Swollen tongue [None]
